FAERS Safety Report 8901566 (Version 1)
Quarter: 2012Q4

REPORT INFORMATION
  Report Type: Spontaneous
  Country: US (occurrence: None)
  Receive Date: 20121108
  Receipt Date: 20121108
  Transmission Date: 20130627
  Serious: Yes (Hospitalization, Disabling)
  Sender: FDA-Public Use
  Company Number: None

PATIENT
  Age: 28 Year
  Sex: Male
  Weight: 75.3 kg

DRUGS (1)
  1. EXJADE [Suspect]
     Dosage: ON + OFF
     Dates: start: 2007, end: 2012

REACTIONS (10)
  - Abdominal pain upper [None]
  - Yellow skin [None]
  - Scleral discolouration [None]
  - Dizziness [None]
  - Asthenia [None]
  - Chromaturia [None]
  - Diarrhoea [None]
  - Nausea [None]
  - Vomiting [None]
  - Deafness unilateral [None]
